FAERS Safety Report 11133085 (Version 1)
Quarter: 2015Q2

REPORT INFORMATION
  Report Type: Spontaneous
  Country: IN (occurrence: IN)
  Receive Date: 20150522
  Receipt Date: 20150522
  Transmission Date: 20150821
  Serious: Yes (Hospitalization)
  Sender: FDA-Public Use
  Company Number: PHHY2015IN058844

PATIENT
  Age: 30 Year
  Sex: Male

DRUGS (9)
  1. CEFIXIME. [Concomitant]
     Active Substance: CEFIXIME
     Indication: FRACTURE REDUCTION
     Route: 048
  2. RANITIDINE [Suspect]
     Active Substance: RANITIDINE\RANITIDINE HYDROCHLORIDE
     Dosage: 50 MG/2 ML
     Route: 040
  3. METRONIDAZOLE. [Concomitant]
     Active Substance: METRONIDAZOLE
     Dosage: 500 MG/100 ML
     Route: 050
  4. DEXAMETASON [Concomitant]
     Active Substance: DEXAMETHASONE
     Indication: FRACTURE REDUCTION
     Dosage: 4 MG,
     Route: 050
  5. CEFOTAXIME [Concomitant]
     Active Substance: CEFOTAXIME\CEFOTAXIME SODIUM
     Indication: FRACTURE REDUCTION
     Dosage: 1 G,
     Route: 050
  6. METRONIDAZOLE. [Concomitant]
     Active Substance: METRONIDAZOLE
     Indication: FRACTURE REDUCTION
     Dosage: UNK
     Route: 048
  7. ONDANSETRON [Concomitant]
     Active Substance: ONDANSETRON
     Dosage: 4 MG,
     Route: 050
  8. ONDANSETRON [Concomitant]
     Active Substance: ONDANSETRON
     Indication: FRACTURE REDUCTION
     Route: 065
  9. RANITIDINE [Suspect]
     Active Substance: RANITIDINE\RANITIDINE HYDROCHLORIDE
     Indication: FRACTURE REDUCTION
     Route: 065

REACTIONS (2)
  - Cardiac arrest [Recovered/Resolved]
  - Circulatory collapse [Recovered/Resolved]
